FAERS Safety Report 23226598 (Version 1)
Quarter: 2023Q4

REPORT INFORMATION
  Report Type: Spontaneous
  Country: GR (occurrence: GR)
  Receive Date: 20231124
  Receipt Date: 20231124
  Transmission Date: 20240110
  Serious: Yes (Other)
  Sender: FDA-Public Use
  Company Number: GR-TEVA-2023-GR-2948993

PATIENT
  Age: 75 Year
  Sex: Female

DRUGS (1)
  1. IRBESARTAN [Suspect]
     Active Substance: IRBESARTAN
     Indication: Product used for unknown indication
     Route: 065

REACTIONS (4)
  - Blood creatinine abnormal [Unknown]
  - Oliguria [Unknown]
  - Therapy non-responder [Unknown]
  - Acute kidney injury [Unknown]
